FAERS Safety Report 22116001 (Version 1)
Quarter: 2023Q1

REPORT INFORMATION
  Report Type: Spontaneous
  Country: US (occurrence: None)
  Receive Date: 20230319
  Receipt Date: 20230319
  Transmission Date: 20230417
  Serious: No
  Sender: FDA-Public Use
  Company Number: None

PATIENT
  Age: 70 Year
  Sex: Female
  Weight: 58.5 kg

DRUGS (5)
  1. PROLIA [Suspect]
     Active Substance: DENOSUMAB
     Indication: Osteoporosis
     Route: 030
  2. CELECOXIB [Concomitant]
     Active Substance: CELECOXIB
  3. Critical calcium [Concomitant]
  4. VITAMINS [Concomitant]
     Active Substance: VITAMINS
  5. MELATONIN [Concomitant]
     Active Substance: MELATONIN

REACTIONS (2)
  - Wheezing [None]
  - Bronchitis [None]

NARRATIVE: CASE EVENT DATE: 20230317
